FAERS Safety Report 7121636-3 (Version None)
Quarter: 2010Q4

REPORT INFORMATION
  Report Type: 
  Country: None (occurrence: None)
  Receive Date: 20101124
  Receipt Date: 20101119
  Transmission Date: 20110411
  Serious: Yes (Other)
  Sender: FDA-Public Use
  Company Number: US-PFIZER INC-2008059001

PATIENT
  Sex: Female
  Weight: 70 kg

DRUGS (5)
  1. PROVERA [Suspect]
     Indication: HORMONE REPLACEMENT THERAPY
     Dosage: 2.5 MG, UNK
     Route: 048
     Dates: start: 19930101, end: 19960101
  2. PREMARIN [Suspect]
     Indication: HORMONE REPLACEMENT THERAPY
     Dosage: 0.625/1.25MG
     Dates: start: 19970101, end: 20030101
  3. ESTRATEST [Suspect]
     Indication: HORMONE REPLACEMENT THERAPY
     Dosage: 1.25 MG, UNK
     Dates: start: 19930101, end: 19960101
  4. ACETYLSALICYLIC ACID [Concomitant]
     Indication: PAIN
     Dosage: UNK
     Dates: start: 20000101
  5. ACETYLSALICYLIC ACID [Concomitant]
     Indication: HEADACHE

REACTIONS (1)
  - BREAST CANCER IN SITU [None]
